FAERS Safety Report 4453024-2 (Version None)
Quarter: 2004Q3

REPORT INFORMATION
  Report Type: 
  Country: None (occurrence: None)
  Receive Date: 20040916
  Receipt Date: 20040907
  Transmission Date: 20050211
  Serious: Yes (Other)
  Sender: FDA-Public Use
  Company Number: 2004232267US

PATIENT
  Sex: Female

DRUGS (2)
  1. PROVERA [Suspect]
     Dates: start: 19700101, end: 20000101
  2. PREMARIN [Suspect]
     Dates: start: 19700101, end: 20000101

REACTIONS (1)
  - BREAST CANCER [None]
